FAERS Safety Report 13616964 (Version 1)
Quarter: 2017Q2

REPORT INFORMATION
  Report Type: Spontaneous
  Country: US (occurrence: US)
  Receive Date: 20170606
  Receipt Date: 20170606
  Transmission Date: 20170830
  Serious: No
  Sender: FDA-Public Use
  Company Number: US-SA-2016SA135578

PATIENT
  Age: 83 Year
  Sex: Female
  Weight: 104.7 kg

DRUGS (4)
  1. SOLOSTAR [Concomitant]
     Active Substance: DEVICE
     Indication: TYPE 2 DIABETES MELLITUS
     Dates: start: 2000
  2. LANTUS SOLOSTAR [Suspect]
     Active Substance: INSULIN GLARGINE
     Indication: TYPE 2 DIABETES MELLITUS
     Dosage: DOSE:20AM/18PM
     Route: 065
     Dates: start: 2000
  3. SOLOSTAR [Concomitant]
     Active Substance: DEVICE
     Indication: TYPE 2 DIABETES MELLITUS
     Dates: start: 2000
  4. LANTUS SOLOSTAR [Suspect]
     Active Substance: INSULIN GLARGINE
     Indication: TYPE 2 DIABETES MELLITUS
     Dosage: DOSE:20AM/18PM
     Route: 065
     Dates: start: 2000

REACTIONS (9)
  - Hyperkeratosis [Unknown]
  - Foot deformity [Unknown]
  - Osteoarthritis [Unknown]
  - Wrong technique in product usage process [Unknown]
  - Neuropathy peripheral [Unknown]
  - Pain [Unknown]
  - Product use issue [Unknown]
  - Oedema [Unknown]
  - Nerve compression [Unknown]

NARRATIVE: CASE EVENT DATE: 2000
